FAERS Safety Report 16964444 (Version 1)
Quarter: 2019Q4

REPORT INFORMATION
  Report Type: Spontaneous
  Country: US (occurrence: US)
  Receive Date: 20190909
  Receipt Date: 20190909
  Transmission Date: 20200122
  Serious: Yes (Hospitalization)
  Sender: FDA-Public Use
  Company Number: None

PATIENT
  Age: 76 Year
  Sex: Male
  Weight: 125 kg

DRUGS (1)
  1. VITAMIN D3 [Suspect]
     Active Substance: CHOLECALCIFEROL
     Route: 048

REACTIONS (13)
  - Oxygen saturation decreased [None]
  - Opiates [None]
  - Knee arthroplasty [None]
  - Depressed level of consciousness [None]
  - Accidental overdose [None]
  - Supraventricular extrasystoles [None]
  - Ejection fraction decreased [None]
  - Cardiac hypertrophy [None]
  - Asthenia [None]
  - Dysstasia [None]
  - Hypotension [None]
  - Gastric ulcer [None]
  - Duodenal ulcer [None]

NARRATIVE: CASE EVENT DATE: 20190821
